FAERS Safety Report 4377991-0 (Version None)
Quarter: 2004Q2

REPORT INFORMATION
  Report Type: 
  Country: None (occurrence: None)
  Receive Date: 20040608
  Receipt Date: 20040526
  Transmission Date: 20050107
  Serious: Yes (Hospitalization)
  Sender: FDA-Public Use
  Company Number: STA-AE-04-MTX-216

PATIENT
  Age: 56 Year
  Sex: Male

DRUGS (7)
  1. METHOTREXATE [Suspect]
     Dosage: 15 MG 1 X PER 1 WK
  2. ENBREL (ETANERCEPT) [Suspect]
     Indication: RHEUMATOID ARTHRITIS
     Dosage: SC INJECTION
     Route: 058
     Dates: end: 20030601
  3. ARAVA [Suspect]
  4. HUMIRA (ADALIMUMAB) [Suspect]
  5. HYDROXYCHLOROQUINE (HYDROXCHLOROQUINE) [Suspect]
  6. KINERET (ANAKINRA) [Suspect]
  7. REMICADE (INFLIXIMAB) [Suspect]

REACTIONS (1)
  - ARTHRITIS INFECTIVE [None]
